FAERS Safety Report 9480776 (Version 2)
Quarter: 2013Q3

REPORT INFORMATION
  Report Type: Spontaneous
  Country: US (occurrence: US)
  Receive Date: 20130828
  Receipt Date: 20130828
  Transmission Date: 20140515
  Serious: Yes (Hospitalization)
  Sender: FDA-Public Use
  Company Number: US-AMGEN-KDL077604

PATIENT
  Age: 43 Year
  Sex: Female

DRUGS (3)
  1. ENBREL [Suspect]
     Indication: RHEUMATOID ARTHRITIS
     Dosage: 25 MG, 2 TIMES/WK
     Route: 058
     Dates: start: 20040201
  2. METHOTREXATE [Concomitant]
  3. SULFASALAZINE [Concomitant]

REACTIONS (3)
  - Osteomyelitis [Unknown]
  - Arthritis infective [Unknown]
  - Joint injury [Unknown]
